FAERS Safety Report 8474488-3 (Version None)
Quarter: 2012Q2

REPORT INFORMATION
  Report Type: 
  Country: None (occurrence: None)
  Receive Date: 20120628
  Receipt Date: 20120626
  Transmission Date: 20120825
  Serious: Yes (Death)
  Sender: FDA-Public Use
  Company Number: PHHY2011TR116946

PATIENT
  Age: 77 Year
  Sex: Male

DRUGS (4)
  1. EXELON [Suspect]
  2. ZYPREXA [Concomitant]
  3. ECOPIRIN [Concomitant]
  4. MEMANTINE HYDROCHLORIDE [Concomitant]

REACTIONS (1)
  - DEATH [None]
